FAERS Safety Report 25883114 (Version 2)
Quarter: 2025Q4

REPORT INFORMATION
  Report Type: Spontaneous
  Country: US (occurrence: US)
  Receive Date: 20251006
  Receipt Date: 20251014
  Transmission Date: 20260118
  Serious: No
  Sender: Kenvue
  Company Number: US-KENVUE-20250901775

PATIENT
  Age: 67 Year
  Sex: Female

DRUGS (1)
  1. MENS ROGAINE EXTRA STRENGTH [Suspect]
     Active Substance: MINOXIDIL
     Indication: Alopecia
     Dosage: HALF A CAP FULL, TWICE A DAY
     Route: 061
     Dates: start: 202001

REACTIONS (5)
  - Product use issue [Unknown]
  - Intentional product misuse [Unknown]
  - Product container issue [Unknown]
  - Product formulation issue [Unknown]
  - Poor quality product administered [Unknown]

NARRATIVE: CASE EVENT DATE: 20200101
